FAERS Safety Report 24104404 (Version 1)
Quarter: 2024Q3

REPORT INFORMATION
  Report Type: Spontaneous
  Country: US (occurrence: US)
  Receive Date: 20240717
  Receipt Date: 20240717
  Transmission Date: 20241017
  Serious: No
  Sender: HIKMA
  Company Number: US-HIKMA PHARMACEUTICALS USA INC.-US-H14001-23-67903

PATIENT
  Sex: Female

DRUGS (1)
  1. AMOXICILLIN [Suspect]
     Active Substance: AMOXICILLIN
     Indication: Adenoiditis
     Dosage: UNKNOWN, BID
     Route: 065

REACTIONS (4)
  - Oropharyngeal pain [Unknown]
  - Eye swelling [Unknown]
  - Diarrhoea [Unknown]
  - Headache [Unknown]
